FAERS Safety Report 4995780-0 (Version None)
Quarter: 2006Q2

REPORT INFORMATION
  Report Type: 
  Country: None (occurrence: None)
  Receive Date: 20060508
  Receipt Date: 20050907
  Transmission Date: 20061013
  Serious: Yes (Hospitalization)
  Sender: FDA-Public Use
  Company Number: US-BOEHRINGER INGELHEIM PHARMACEUTICALS, INC.-2005-BP-15679BP

PATIENT
  Sex: Male
  Weight: 55.3 kg

DRUGS (3)
  1. TIPRANAVIR / RITONAVIR CAPSULES [Suspect]
     Indication: HIV INFECTION
     Dosage: TPV/R 1000/400 MG
     Route: 048
     Dates: start: 20041102
  2. MEGACE [Concomitant]
     Indication: WEIGHT DECREASED
     Route: 048
  3. TINCUTRE OF OPIUM [Concomitant]
     Indication: DIARRHOEA
     Route: 048
     Dates: start: 20050627

REACTIONS (5)
  - BACK PAIN [None]
  - COLITIS [None]
  - DYSPNOEA [None]
  - PRODUCTIVE COUGH [None]
  - PYREXIA [None]
